FAERS Safety Report 15591681 (Version 5)
Quarter: 2019Q1

REPORT INFORMATION
  Report Type: Report from Study
  Country: CO (occurrence: CO)
  Receive Date: 20181107
  Receipt Date: 20190131
  Transmission Date: 20190417
  Serious: Yes (Hospitalization, Other)
  Sender: FDA-Public Use
  Company Number: CO-AEGERION PHARMACEUTICAL, INC-AEGR003886

PATIENT

DRUGS (19)
  1. MYALEPT [Suspect]
     Active Substance: METRELEPTIN
     Dosage: 0.27 CC, QD
     Route: 058
     Dates: start: 20170524, end: 20180602
  2. MYALEPT [Suspect]
     Active Substance: METRELEPTIN
     Dosage: 0.34 ML, UNK
     Route: 058
     Dates: start: 20181024
  3. MYALEPT [Suspect]
     Active Substance: METRELEPTIN
     Dosage: 0.30 ML, QD
     Route: 058
     Dates: start: 20181025
  4. LEVEMIR [Concomitant]
     Active Substance: INSULIN DETEMIR
     Indication: HYPERGLYCAEMIA
     Dosage: 15U, AM AND PM, BEFORE METRELEPTIN
  5. NOVORAPID [Concomitant]
     Active Substance: INSULIN ASPART
     Dosage: 10 U WITH MEALS PLUS CORRECTION, AFTER STOPPING METRELEPTIN
  6. MYALEPT [Suspect]
     Active Substance: METRELEPTIN
     Dosage: 0.27 ML (0.08 MG/KG), UNK
     Route: 058
     Dates: start: 20180729
  7. LEVEMIR [Concomitant]
     Active Substance: INSULIN DETEMIR
     Dosage: 30U, AM AND PM, AFTER STOPPING METRELPTIN
  8. NOVORAPID [Concomitant]
     Active Substance: INSULIN ASPART
     Indication: PRODUCT USED FOR UNKNOWN INDICATION
     Dosage: 6 U WITH MEALS PLUS CORRECTION, WITH METRELEPTIN
  9. LEVOTHYROXINE. [Concomitant]
     Active Substance: LEVOTHYROXINE
     Indication: HYPOTHYROIDISM
     Dosage: 50 MCG, FASTING, 30 MIN BEFORE BREAKFAST EVERYDAY
     Route: 048
  10. MYALEPT [Suspect]
     Active Substance: METRELEPTIN
     Dosage: 0.27 ML, QD
     Route: 057
     Dates: start: 20180524
  11. MYALEPT [Suspect]
     Active Substance: METRELEPTIN
     Dosage: 0.35 ML, QD (EACH 24 HOURS)
     Route: 058
     Dates: start: 20180803
  12. MYALEPT [Suspect]
     Active Substance: METRELEPTIN
     Dosage: 0.2 ML, QD
     Route: 058
  13. MYALEPT [Suspect]
     Active Substance: METRELEPTIN
     Dosage: 0.06 MG, UNK
     Route: 058
  14. MYALEPT [Suspect]
     Active Substance: METRELEPTIN
     Dosage: 0.37 ML, UNK
     Dates: start: 20181023
  15. INSULIN [Suspect]
     Active Substance: INSULIN NOS
     Indication: DIABETES MELLITUS
     Dosage: 10 UNITS, EVERY 8 HOURS
     Route: 058
     Dates: start: 20180105
  16. OMEGA 3                            /01334101/ [Concomitant]
     Active Substance: OMEGA-3 FATTY ACIDS
     Indication: HYPERTRIGLYCERIDAEMIA
     Dosage: 1 G, CAPSULE BEFORE EACH MEAL
  17. LEVEMIR [Concomitant]
     Active Substance: INSULIN DETEMIR
     Dosage: 28 UNITS, THRICE A DAY (AFTER MEALS)
     Route: 058
  18. MYALEPT [Suspect]
     Active Substance: METRELEPTIN
     Indication: CONGENITAL GENERALISED LIPODYSTROPHY
     Dosage: 0.35 ML, EACH 24 HRS
     Route: 058
     Dates: start: 20161201
  19. APIDRA [Concomitant]
     Active Substance: INSULIN GLULISINE
     Indication: HYPERGLYCAEMIA
     Dosage: 10 UNITS, THRICE A DAY (AFTER MEALS)
     Route: 058

REACTIONS (21)
  - Glycosylated haemoglobin increased [Recovering/Resolving]
  - Pyrexia [Recovered/Resolved]
  - Insulin resistance [Unknown]
  - Nausea [Unknown]
  - Therapy cessation [Recovered/Resolved]
  - Hyperglycaemia [Recovered/Resolved]
  - Diabetic ketoacidosis [Unknown]
  - Glucose urine present [Recovering/Resolving]
  - Vomiting [Recovered/Resolved]
  - Increased appetite [Recovered/Resolved]
  - Decreased appetite [Recovered/Resolved]
  - Abdominal pain [Unknown]
  - Somnolence [Unknown]
  - Transaminases increased [Recovering/Resolving]
  - Skin odour abnormal [Not Recovered/Not Resolved]
  - Drug ineffective [Unknown]
  - Depressed mood [Recovered/Resolved]
  - Diabetic metabolic decompensation [Unknown]
  - Hypertriglyceridaemia [Recovered/Resolved]
  - Hyperlipidaemia [Unknown]
  - Hair growth abnormal [Not Recovered/Not Resolved]

NARRATIVE: CASE EVENT DATE: 2018
